FAERS Safety Report 16140635 (Version 1)
Quarter: 2019Q1

REPORT INFORMATION
  Report Type: Spontaneous
  Country: US (occurrence: US)
  Receive Date: 20190226
  Receipt Date: 20190226
  Transmission Date: 20190418
  Serious: Yes (Disabling, Other)
  Sender: FDA-Public Use
  Company Number: None

PATIENT
  Age: 76 Year
  Sex: Female
  Weight: 85.73 kg

DRUGS (3)
  1. IBUPROFEN. [Concomitant]
     Active Substance: IBUPROFEN
  2. DICLOFENAC SOD [Concomitant]
     Active Substance: DICLOFENAC SODIUM
  3. LOSARTAN. [Suspect]
     Active Substance: LOSARTAN
     Indication: HYPERTENSION
     Dosage: ?          QUANTITY:1 DF DOSAGE FORM;?
     Route: 048
     Dates: end: 20190201

REACTIONS (9)
  - Tongue blistering [None]
  - Skin disorder [None]
  - Decubitus ulcer [None]
  - Glossodynia [None]
  - Tooth disorder [None]
  - Tooth injury [None]
  - Insomnia [None]
  - Paraesthesia [None]
  - Depression [None]

NARRATIVE: CASE EVENT DATE: 20160301
